FAERS Safety Report 5713944-5 (Version None)
Quarter: 2008Q2

REPORT INFORMATION
  Report Type: 
  Country: None (occurrence: None)
  Receive Date: 20080422
  Receipt Date: 20080422
  Transmission Date: 20081010
  Serious: Yes (Hospitalization)
  Sender: FDA-Public Use
  Company Number: None

PATIENT
  Age: 65 Year
  Sex: Female

DRUGS (13)
  1. LAPATINIB [Suspect]
     Indication: OVARIAN CANCER
     Dosage: 1000MG PO QD
     Route: 048
     Dates: start: 20080128, end: 20080420
  2. CARBOPLATIN [Suspect]
     Dosage: AUC 2 IV
     Route: 042
     Dates: start: 20080128, end: 20080420
  3. TAXOL [Suspect]
     Dosage: 6MG/M2 IV Q3W
     Route: 042
     Dates: start: 20080128, end: 20080420
  4. METOPROLOL TARTRATE [Concomitant]
  5. PROTONIX [Concomitant]
  6. PAXIL [Concomitant]
  7. ATIVAN [Concomitant]
  8. ZOFRAN [Concomitant]
  9. COMPAZINE [Concomitant]
  10. IMODIUM [Concomitant]
  11. MAGNESIUM [Concomitant]
  12. COUMADIN [Concomitant]
  13. PEPCID [Concomitant]

REACTIONS (6)
  - ABDOMINAL DISTENSION [None]
  - DIZZINESS [None]
  - DYSPNOEA [None]
  - DYSPNOEA EXERTIONAL [None]
  - ORTHOPNOEA [None]
  - PALPITATIONS [None]
